FAERS Safety Report 5270383-1 (Version None)
Quarter: 2007Q1

REPORT INFORMATION
  Report Type: 
  Country: None (occurrence: None)
  Receive Date: 20070320
  Receipt Date: 20070312
  Transmission Date: 20070707
  Serious: Yes (Hospitalization, Disabling, Other)
  Sender: FDA-Public Use
  Company Number: BE-BOEHRINGER INGELHEIM PHARMACEUTICALS, INC.-2007-BP-00977YA

PATIENT
  Sex: Male

DRUGS (7)
  1. TAMSULOSIN HCL [Suspect]
     Indication: BENIGN PROSTATIC HYPERPLASIA
     Route: 065
     Dates: start: 20040717, end: 20070118
  2. PROPRANOLOL [Concomitant]
     Route: 065
     Dates: start: 19980101
  3. DEANXIT [Concomitant]
     Route: 065
     Dates: start: 20030101
  4. CITALOPRAM HYDROBROMIDE [Concomitant]
     Route: 065
     Dates: start: 20030101
  5. AMITRIPTYLINE HYDROCHLORIDE [Concomitant]
     Route: 065
     Dates: start: 20030101
  6. VENLAFAXINE HYDROCHLORIDE [Concomitant]
     Route: 065
     Dates: start: 20030101
  7. BETAHISTINE HYDROCHLORIDE [Concomitant]
     Route: 065
     Dates: start: 20030101

REACTIONS (2)
  - CALCULUS URETERIC [None]
  - PAPILLARY TUMOUR OF RENAL PELVIS [None]
